FAERS Safety Report 10753341 (Version 1)
Quarter: 2015Q1

REPORT INFORMATION
  Report Type: Spontaneous
  Country: AR (occurrence: None)
  Receive Date: 20150129
  Receipt Date: 20150129
  Transmission Date: 20150721
  Serious: Yes (Hospitalization, Other)
  Sender: FDA-Public Use
  Company Number: AR-2015VAL000094

PATIENT
  Age: 38 Year
  Sex: Female

DRUGS (2)
  1. METHYLERGONOVINE MALEATE. [Suspect]
     Active Substance: METHYLERGONOVINE MALEATE
     Indication: UTERINE LEIOMYOMA
     Dates: start: 20150111
  2. OXYTOCIN (OXYTOCIN) [Concomitant]

REACTIONS (6)
  - Eye haemorrhage [None]
  - Crying [None]
  - Tremor [None]
  - Exposure during breast feeding [None]
  - Anxiety [None]
  - Off label use [None]

NARRATIVE: CASE EVENT DATE: 20150111
